FAERS Safety Report 12203717 (Version 3)
Quarter: 2016Q3

REPORT INFORMATION
  Report Type: Spontaneous
  Country: US (occurrence: US)
  Receive Date: 20160323
  Receipt Date: 20160930
  Transmission Date: 20161109
  Serious: No
  Sender: FDA-Public Use
  Company Number: US-LUPIN PHARMACEUTICALS INC.-E2B_00005012

PATIENT
  Age: 58 Year
  Sex: Male
  Weight: 100.33 kg

DRUGS (1)
  1. CEPHALEXIN CAPSULES 500 MG [Suspect]
     Active Substance: CEPHALEXIN
     Indication: PROPHYLAXIS
     Route: 048
     Dates: start: 20160205

REACTIONS (2)
  - Weight decreased [Unknown]
  - Diarrhoea [Unknown]

NARRATIVE: CASE EVENT DATE: 201602
